FAERS Safety Report 4325725-8 (Version None)
Quarter: 2004Q1

REPORT INFORMATION
  Report Type: 
  Country: None (occurrence: None)
  Receive Date: 20040324
  Receipt Date: 20040316
  Transmission Date: 20041129
  Serious: Yes (Other)
  Sender: FDA-Public Use
  Company Number: 200313634BCC

PATIENT
  Sex: Female
  Weight: 55.3388 kg

DRUGS (3)
  1. EXTRA STRENGTH BAYER BACK + BODY PAIN [Suspect]
     Indication: HEADACHE
     Dosage: 1000 MG, ONCE, ORAL
     Route: 048
     Dates: start: 20031002
  2. VOSPIRE [Concomitant]
  3. PREMARIN [Concomitant]

REACTIONS (9)
  - ANAPHYLACTIC REACTION [None]
  - BLOOD PRESSURE DECREASED [None]
  - DELIRIUM [None]
  - DYSPNOEA [None]
  - HYPERHIDROSIS [None]
  - PRURITUS [None]
  - PYREXIA [None]
  - SWOLLEN TONGUE [None]
  - URTICARIA [None]
